FAERS Safety Report 26190688 (Version 1)
Quarter: 2025Q4

REPORT INFORMATION
  Report Type: Spontaneous
  Country: US (occurrence: US)
  Receive Date: 20251223
  Receipt Date: 20251223
  Transmission Date: 20260117
  Serious: Yes (Other)
  Sender: RANBAXY
  Company Number: US-SUN PHARMACEUTICAL INDUSTRIES LTD-2025R1-542843

PATIENT
  Age: 53 Year
  Sex: Female

DRUGS (4)
  1. LEVOTHYROXINE [Suspect]
     Active Substance: LEVOTHYROXINE
     Indication: Hypothyroidism
     Dosage: UNK (50 MCG)
     Route: 065
  2. LEVOTHYROXINE [Suspect]
     Active Substance: LEVOTHYROXINE
     Dosage: UNK (75 MCG)
     Route: 065
  3. SODIUM CHLORIDE [Suspect]
     Active Substance: SODIUM CHLORIDE
     Indication: Hyponatraemia
     Dosage: UNK (3%)
     Route: 065
  4. FLUDROCORTISONE [Suspect]
     Active Substance: FLUDROCORTISONE
     Indication: Hyponatraemia
     Dosage: UNK
     Route: 065

REACTIONS (1)
  - Drug resistance [Unknown]
